FAERS Safety Report 11026699 (Version 3)
Quarter: 2017Q1

REPORT INFORMATION
  Report Type: Spontaneous
  Country: US (occurrence: US)
  Receive Date: 20150414
  Receipt Date: 20170314
  Transmission Date: 20170428
  Serious: Yes (Other)
  Sender: FDA-Public Use
  Company Number: US-ELI_LILLY_AND_COMPANY-US201504002488

PATIENT
  Sex: Female

DRUGS (2)
  1. CYMBALTA [Suspect]
     Active Substance: DULOXETINE HYDROCHLORIDE
     Indication: HEADACHE
  2. CYMBALTA [Suspect]
     Active Substance: DULOXETINE HYDROCHLORIDE
     Indication: NEURALGIA
     Dosage: UNK UNK, UNKNOWN
     Route: 048
     Dates: start: 200701, end: 201304

REACTIONS (22)
  - Restlessness [Unknown]
  - Feeling hot [Unknown]
  - Drug withdrawal syndrome [Unknown]
  - Tremor [Unknown]
  - Nightmare [Unknown]
  - Off label use [Recovered/Resolved]
  - Fatigue [Recovered/Resolved]
  - Dizziness [Recovered/Resolved]
  - Headache [Recovered/Resolved]
  - Paraesthesia [Unknown]
  - Hyperhidrosis [Recovered/Resolved]
  - Agitation [Recovered/Resolved]
  - Confusional state [Recovered/Resolved]
  - Sleep disorder [Unknown]
  - Anxiety [Unknown]
  - Vomiting [Recovered/Resolved]
  - Crying [Unknown]
  - Insomnia [Unknown]
  - Nausea [Unknown]
  - Depression [Unknown]
  - Suicidal ideation [Unknown]
  - Vertigo [Recovered/Resolved]
